FAERS Safety Report 9931302 (Version 2)
Quarter: 2014Q1

REPORT INFORMATION
  Report Type: Spontaneous
  Country: CA (occurrence: CA)
  Receive Date: 20140228
  Receipt Date: 20140228
  Transmission Date: 20141002
  Serious: Yes (Death, Hospitalization)
  Sender: FDA-Public Use
  Company Number: CA-ROCHE-1344901

PATIENT
  Age: 62 Year
  Sex: Male

DRUGS (5)
  1. XOLAIR [Suspect]
     Indication: ASTHMA
     Route: 058
     Dates: start: 20130410
  2. SYMBICORT [Concomitant]
  3. ASMANEX [Concomitant]
  4. SINGULAIR [Concomitant]
  5. ZITHROMAX [Concomitant]

REACTIONS (2)
  - Pancreatic carcinoma [Fatal]
  - Jaundice [Unknown]
